FAERS Safety Report 9206948 (Version 2)
Quarter: 2013Q2

REPORT INFORMATION
  Report Type: Spontaneous
  Country: US (occurrence: US)
  Receive Date: 20130403
  Receipt Date: 20130405
  Transmission Date: 20140414
  Serious: Yes (Other)
  Sender: FDA-Public Use
  Company Number: US-PFIZER INC-2013103006

PATIENT
  Sex: Female

DRUGS (1)
  1. AVINZA [Suspect]
     Dosage: 90 MG, UNK

REACTIONS (4)
  - Ulcer haemorrhage [Unknown]
  - Gastrointestinal disorder [Unknown]
  - Tooth disorder [Unknown]
  - Intervertebral disc protrusion [Unknown]
